FAERS Safety Report 9627626 (Version 2)
Quarter: 2013Q4

REPORT INFORMATION
  Report Type: Not Available
  Country: US (occurrence: US)
  Receive Date: 20131016
  Receipt Date: 20131016
  Transmission Date: 20140711
  Serious: Yes (Hospitalization)
  Sender: FDA-Public Use
  Company Number: US-LUNDBECK-DKLU1090620

PATIENT
  Age: 7 Year
  Sex: Female
  Weight: 23 kg

DRUGS (8)
  1. SABRIL (TABLET) [Suspect]
     Indication: EPILEPSY
     Dates: start: 20121220
  2. SABRIL (TABLET) [Suspect]
     Dates: start: 20130422
  3. SABRIL (TABLET) [Suspect]
  4. SABRIL (TABLET) [Suspect]
  5. ONFI [Concomitant]
     Indication: EPILEPSY
  6. ZONISAMIDE [Concomitant]
     Indication: EPILEPSY
  7. RUFINAMIDE [Concomitant]
     Indication: PRODUCT USED FOR UNKNOWN INDICATION
  8. METHSUXIMIDE [Concomitant]
     Indication: PRODUCT USED FOR UNKNOWN INDICATION

REACTIONS (2)
  - Convulsion [Recovering/Resolving]
  - Underdose [Recovered/Resolved]
